FAERS Safety Report 12636437 (Version 1)
Quarter: 2016Q3

REPORT INFORMATION
  Report Type: Spontaneous
  Country: ES (occurrence: ES)
  Receive Date: 20160809
  Receipt Date: 20160809
  Transmission Date: 20161109
  Serious: Yes (Other)
  Sender: FDA-Public Use
  Company Number: ES-ASTRAZENECA-2016SE84437

PATIENT
  Age: 64 Year
  Sex: Male

DRUGS (9)
  1. NOVORAPID [Concomitant]
     Active Substance: INSULIN ASPART
     Dosage: 100 UNITS/ML SOLUTION FOR INJECTION IN PRE-FILLED PEN 5 PRE-FILLED PENS OF 3 ML (INSULIN ASPART),...
     Route: 058
     Dates: start: 20160215
  2. BRILIQUE [Suspect]
     Active Substance: TICAGRELOR
     Indication: ACUTE MYOCARDIAL INFARCTION
     Dosage: LATENCY: 5 MONTHS, 180MG DAILY
     Route: 048
     Dates: start: 20150913, end: 20160229
  3. RAMIPRIL. [Concomitant]
     Active Substance: RAMIPRIL
     Dosage: LATENCY: 5 MONTHS 5MG DAILY
     Route: 048
     Dates: start: 20150910
  4. LEVEMIR [Concomitant]
     Active Substance: INSULIN DETEMIR
     Dosage: 100 UNITS/ML SOLUTION FOR INJECTION IN PRE-FILLED PEN (FLEXPEN) 5 PRE-FILLED PENS OF 3 ML (FLEXPE...
     Route: 058
     Dates: start: 20160215
  5. ATORVASTATIN [Concomitant]
     Active Substance: ATORVASTATIN
     Indication: ACUTE MYOCARDIAL INFARCTION
     Dosage: LATENCY: 5 MONTHS 40MG DAILY
     Route: 048
     Dates: start: 20150910
  6. OMEPRAZOLE. [Concomitant]
     Active Substance: OMEPRAZOLE
     Dosage: LATENCY: 36 MONTHS 20MG DAILY
     Route: 048
     Dates: start: 20130213
  7. BISOPROLOL [Concomitant]
     Active Substance: BISOPROLOL
     Indication: ACUTE MYOCARDIAL INFARCTION
     Dosage: LATENCY: 5 MONTHS 2.5MG DAILY
     Route: 048
     Dates: start: 20150910
  8. EFFICIB [Concomitant]
     Active Substance: METFORMIN HYDROCHLORIDE\SITAGLIPTIN PHOSPHATE
     Indication: DIABETES MELLITUS
     Dosage: LATENCY: 38 MONTHS 50 MG/1000 MG, DAILY
     Route: 048
     Dates: start: 20121227
  9. ACETYLSALICYLIC ACID [Interacting]
     Active Substance: ASPIRIN
     Indication: ACUTE MYOCARDIAL INFARCTION
     Dosage: LATENCY: 5 MONTHS 100MG DAILY
     Route: 048
     Dates: start: 20150910, end: 20160229

REACTIONS (2)
  - Upper gastrointestinal haemorrhage [Recovered/Resolved]
  - Drug interaction [Unknown]

NARRATIVE: CASE EVENT DATE: 201602
